FAERS Safety Report 18464315 (Version 1)
Quarter: 2020Q4

REPORT INFORMATION
  Report Type: Report from Study
  Country: FR (occurrence: FR)
  Receive Date: 20201104
  Receipt Date: 20201104
  Transmission Date: 20210114
  Serious: Yes (Death, Hospitalization, Other)
  Sender: FDA-Public Use
  Company Number: FR-JAZZ-2020-FR-002978

PATIENT

DRUGS (9)
  1. MEROPENEM. [Concomitant]
     Active Substance: MEROPENEM
     Indication: ANTIBIOTIC THERAPY
     Dosage: 2 GRAM, QD
     Route: 042
     Dates: start: 20200117, end: 20200131
  2. DAPTOMYCIN. [Concomitant]
     Active Substance: DAPTOMYCIN
     Indication: ANTIBIOTIC THERAPY
     Dosage: 80 MILLIGRAM, QD
     Route: 042
     Dates: start: 20200123, end: 20200131
  3. CELLCEPT [Concomitant]
     Active Substance: MYCOPHENOLATE MOFETIL\MYCOPHENOLATE MOFETIL HYDROCHLORIDE
     Indication: PROPHYLAXIS
     Dosage: 3000 MILLIGRAM, QD
     Route: 042
     Dates: start: 20200115, end: 20200131
  4. MYCAMINE [Concomitant]
     Active Substance: MICAFUNGIN SODIUM
     Indication: ANTIFUNGAL TREATMENT
     Dosage: 50 MILLIGRAM, QD
     Route: 042
     Dates: start: 20200122, end: 20200131
  5. ZOVIRAX [Concomitant]
     Active Substance: ACYCLOVIR
     Indication: ANTIVIRAL TREATMENT
     Dosage: 1500 MILLIGRAM, QD
     Route: 042
     Dates: start: 20200125, end: 20200131
  6. CICLOSPORIN [Concomitant]
     Active Substance: CYCLOSPORINE
     Indication: PROPHYLAXIS
     Dosage: 350 MILLIGRAM, QD
     Route: 042
     Dates: start: 20200115, end: 20200131
  7. DEFITELIO [Suspect]
     Active Substance: DEFIBROTIDE SODIUM
     Dosage: 22.42 MILLIGRAM/KILOGRAM/DAY
     Route: 042
     Dates: start: 202001, end: 20200128
  8. DEFITELIO [Suspect]
     Active Substance: DEFIBROTIDE SODIUM
     Indication: VENOOCCLUSIVE LIVER DISEASE
     Dosage: 22.8 MILLIGRAM/KILOGRAM/DAY
     Route: 042
     Dates: start: 20200122, end: 202001
  9. LASILIX [FUROSEMIDE] [Concomitant]
     Active Substance: FUROSEMIDE
     Indication: OEDEMA
     Dosage: 250 MG+165 MG/DAY
     Route: 042
     Dates: start: 20200121

REACTIONS (6)
  - Venoocclusive liver disease [Fatal]
  - Drug ineffective [Unknown]
  - Off label use [Unknown]
  - Bacterial infection [Fatal]
  - Multiple organ dysfunction syndrome [Fatal]
  - Pulmonary oedema [Unknown]

NARRATIVE: CASE EVENT DATE: 202001
